FAERS Safety Report 13504091 (Version 1)
Quarter: 2017Q2

REPORT INFORMATION
  Report Type: Spontaneous
  Country: MX (occurrence: MX)
  Receive Date: 20170502
  Receipt Date: 20170502
  Transmission Date: 20170830
  Serious: Yes (Other)
  Sender: FDA-Public Use
  Company Number: MX-BAYER-2017-078002

PATIENT
  Age: 19 Year
  Sex: Female

DRUGS (1)
  1. JAYDESS [Suspect]
     Active Substance: LEVONORGESTREL
     Dosage: 14 MCG/24HR, CONT
     Route: 015
     Dates: start: 2016, end: 201702

REACTIONS (4)
  - Drug ineffective [None]
  - Ruptured ectopic pregnancy [Unknown]
  - Ectopic pregnancy with contraceptive device [None]
  - Peritoneal haemorrhage [Unknown]
